FAERS Safety Report 5107634-X (Version None)
Quarter: 2006Q3

REPORT INFORMATION
  Report Type: 
  Country: None (occurrence: None)
  Receive Date: 20060919
  Receipt Date: 20060615
  Transmission Date: 20061208
  Serious: Yes (Death)
  Sender: FDA-Public Use
  Company Number: PHBS2006IE08899

PATIENT
  Age: 74 Year
  Sex: Male

DRUGS (6)
  1. DIOVAN HCT [Suspect]
     Indication: HYPERTENSION
     Dosage: VALS 80  / HCT 12.5 MG/DAY
     Route: 048
     Dates: start: 20050523
  2. SIMVASTATIN [Concomitant]
  3. MESULID [Concomitant]
  4. NEXIUM [Concomitant]
  5. CAPRIN [Concomitant]
  6. HYTRIN [Concomitant]
     Dosage: 5 G, UNK

REACTIONS (5)
  - CIRCULATORY COLLAPSE [None]
  - CORONARY ARTERY DISEASE [None]
  - MALAISE [None]
  - MYOCARDIAL ISCHAEMIA [None]
  - STRESS [None]
